FAERS Safety Report 11971437 (Version 1)
Quarter: 2016Q1

REPORT INFORMATION
  Report Type: Report from Study
  Country: BE (occurrence: BE)
  Receive Date: 20160128
  Receipt Date: 20160128
  Transmission Date: 20160526
  Serious: Yes (Other)
  Sender: FDA-Public Use
  Company Number: BE-BEH-2016058191

PATIENT
  Sex: Male

DRUGS (7)
  1. AQUA RHINOCORT [Concomitant]
  2. XYZAL [Concomitant]
     Active Substance: LEVOCETIRIZINE DIHYDROCHLORIDE
     Dosage: 1X/DAY
  3. HIZENTRA [Suspect]
     Active Substance: HUMAN IMMUNOGLOBULIN G
     Indication: PRODUCT USED FOR UNKNOWN INDICATION
     Route: 058
  4. OMEPRAZOLE. [Concomitant]
     Active Substance: OMEPRAZOLE
     Dosage: 1X/DAY
  5. CREON [Concomitant]
     Active Substance: PANCRELIPASE AMYLASE\PANCRELIPASE LIPASE\PANCRELIPASE PROTEASE
     Dosage: 1X/DAY
  6. EUSAPRIM SIRUP [Concomitant]
     Dosage: 1X/DAY
  7. AZITHROMYCIN SIRUP [Concomitant]
     Dosage: 1X/DAY

REACTIONS (4)
  - Infection parasitic [Unknown]
  - Staphylococcal infection [Unknown]
  - Gastrointestinal surgery [Unknown]
  - Catheter site haemorrhage [Unknown]
